FAERS Safety Report 24232983 (Version 1)
Quarter: 2024Q3

REPORT INFORMATION
  Report Type: Spontaneous
  Country: US (occurrence: None)
  Receive Date: 20240820
  Receipt Date: 20240820
  Transmission Date: 20241016
  Serious: No
  Sender: Public
  Company Number: None

PATIENT
  Age: 87 Year
  Sex: Male

DRUGS (1)
  1. POMALYST [Suspect]
     Active Substance: POMALIDOMIDE
     Indication: Plasma cell myeloma
     Dosage: 4MG QD ORAL?
     Route: 048
     Dates: start: 20240703

REACTIONS (3)
  - Febrile neutropenia [None]
  - Pneumonia [None]
  - Therapy change [None]

NARRATIVE: CASE EVENT DATE: 20240801
